FAERS Safety Report 9706902 (Version 4)
Quarter: 2013Q4

REPORT INFORMATION
  Report Type: Spontaneous
  Country: US (occurrence: US)
  Receive Date: 20131125
  Receipt Date: 20131219
  Transmission Date: 20140711
  Serious: Yes (Other)
  Sender: FDA-Public Use
  Company Number: US-JNJFOC-20131110914

PATIENT
  Age: 41 Year
  Sex: Male
  Weight: 68 kg

DRUGS (6)
  1. REMICADE [Suspect]
     Indication: CROHN^S DISEASE
     Dosage: DOSE: 5 MG/KG, APPROXIMATELY 4 INFUSIONS
     Route: 042
     Dates: start: 20111202, end: 20120316
  2. 6-MERCAPTOPURINE [Concomitant]
     Route: 065
     Dates: start: 20110911
  3. PREDNISONE [Concomitant]
     Route: 065
  4. ASACOL HD [Concomitant]
     Indication: COLITIS
     Route: 065
     Dates: start: 20110310
  5. LOMOTIL [Concomitant]
     Indication: DIARRHOEA
     Route: 065
  6. OMEPRAZOLE [Concomitant]
     Route: 065

REACTIONS (1)
  - T-cell lymphoma [Not Recovered/Not Resolved]
